FAERS Safety Report 20126870 (Version 1)
Quarter: 2021Q4

REPORT INFORMATION
  Report Type: Spontaneous
  Country: CN (occurrence: CN)
  Receive Date: 20211129
  Receipt Date: 20211129
  Transmission Date: 20220303
  Serious: Yes (Other)
  Sender: FDA-Public Use
  Company Number: CN-LUNDMERZ-DKLU3041212

PATIENT

DRUGS (1)
  1. MEMANTINE [Suspect]
     Active Substance: MEMANTINE
     Indication: Product used for unknown indication
     Dosage: UNK

REACTIONS (4)
  - Parkinson^s disease [Unknown]
  - Decreased appetite [Unknown]
  - Irritability [Unknown]
  - Dizziness [Unknown]
